FAERS Safety Report 7513442-2 (Version None)
Quarter: 2011Q2

REPORT INFORMATION
  Report Type: 
  Country: None (occurrence: None)
  Receive Date: 20110531
  Receipt Date: 20110520
  Transmission Date: 20111010
  Serious: Yes (Hospitalization)
  Sender: FDA-Public Use
  Company Number: CZ-UCBSA-8031106

PATIENT
  Sex: Female
  Weight: 84 kg

DRUGS (14)
  1. MEDROL [Concomitant]
  2. METHOTREXATE [Concomitant]
     Dosage: 4 - 0 - 4
  3. CLINDAMYCIN HCL [Concomitant]
     Indication: ABSCESS JAW
     Dates: start: 20070820, end: 20070904
  4. CALTRATE PLUS [Concomitant]
     Dosage: 1 - 0 - 0
  5. MODURETIC 5-50 [Concomitant]
     Indication: SWELLING
  6. CIMZIA [Suspect]
     Route: 058
     Dates: start: 20080410
  7. GENTAMICIN LEK [Concomitant]
     Dosage: 80MG/2ML
  8. CIMZIA [Suspect]
     Route: 058
     Dates: start: 20060620, end: 20080312
  9. MOVALIS [Concomitant]
  10. QUAMATEL [Concomitant]
     Dosage: 0 - 0 - 1
  11. CIMZIA [Suspect]
     Indication: RHEUMATOID ARTHRITIS
     Route: 058
     Dates: start: 20060104, end: 20060620
  12. FOXAMAX [Concomitant]
     Dates: start: 20060514, end: 20080321
  13. ATORIS [Concomitant]
  14. FOLIC ACID [Concomitant]
     Dosage: ON TUESDAY

REACTIONS (1)
  - ABSCESS [None]
